FAERS Safety Report 10688792 (Version 1)
Quarter: 2015Q1

REPORT INFORMATION
  Report Type: Spontaneous
  Country: US (occurrence: US)
  Receive Date: 20150103
  Receipt Date: 20150103
  Transmission Date: 20150720
  Serious: Yes (Hospitalization, Other)
  Sender: FDA-Public Use
  Company Number: US-AUROBINDO-AUR-APL-2014-13683

PATIENT
  Age: 12 Year
  Sex: Male

DRUGS (5)
  1. AMOXICILLIN. [Suspect]
     Active Substance: AMOXICILLIN
     Indication: STREPTOCOCCAL INFECTION
     Route: 065
  2. CLINDAMYCIN [Suspect]
     Active Substance: CLINDAMYCIN\CLINDAMYCIN PHOSPHATE
     Indication: PRODUCT USED FOR UNKNOWN INDICATION
     Dosage: 300 MG, 3 TIMES A DAY
     Route: 048
  3. AMPICILLIN AND SALBUCTAM [Suspect]
     Active Substance: AMPICILLIN SODIUM\SULBACTAM SODIUM
     Indication: PRODUCT USED FOR UNKNOWN INDICATION
     Dosage: UNK
     Route: 065
  4. VANCOMYCIN [Suspect]
     Active Substance: VANCOMYCIN
     Indication: CELLULITIS
     Dosage: UNK
     Route: 065
  5. CEFTRIAXONE. [Suspect]
     Active Substance: CEFTRIAXONE
     Indication: CELLULITIS
     Dosage: UNK
     Route: 065

REACTIONS (34)
  - Decreased appetite [Unknown]
  - Dysphagia [Unknown]
  - Local swelling [Unknown]
  - Dehydration [Recovering/Resolving]
  - Bilirubin conjugated increased [Recovering/Resolving]
  - Eosinophilia [Recovering/Resolving]
  - Prothrombin time abnormal [Recovering/Resolving]
  - Hepatomegaly [Recovering/Resolving]
  - Portal fibrosis [Recovering/Resolving]
  - Headache [Recovering/Resolving]
  - Blood alkaline phosphatase increased [Recovering/Resolving]
  - Abdominal pain [Recovering/Resolving]
  - Pruritus [Recovering/Resolving]
  - Aspartate aminotransferase increased [Recovering/Resolving]
  - Faeces pale [Recovering/Resolving]
  - Jaundice [Recovering/Resolving]
  - Drug-induced liver injury [Recovered/Resolved]
  - Pyrexia [Recovered/Resolved]
  - Blood bilirubin increased [Recovering/Resolving]
  - Fatigue [Recovering/Resolving]
  - Ocular icterus [Recovering/Resolving]
  - Hepatosplenomegaly [Recovering/Resolving]
  - Liver tenderness [Recovering/Resolving]
  - Oedema [Recovering/Resolving]
  - Chromaturia [Recovering/Resolving]
  - Alanine aminotransferase increased [Recovering/Resolving]
  - International normalised ratio abnormal [Recovering/Resolving]
  - Cholestasis [Recovering/Resolving]
  - Hepatitis cholestatic [Recovered/Resolved]
  - Lymphadenopathy mediastinal [Recovering/Resolving]
  - Condition aggravated [Recovering/Resolving]
  - Anaemia [Unknown]
  - Activated partial thromboplastin time abnormal [Recovering/Resolving]
  - Chest pain [Recovering/Resolving]
